FAERS Safety Report 10559751 (Version 1)
Quarter: 2014Q4

REPORT INFORMATION
  Report Type: Spontaneous
  Country: US (occurrence: US)
  Receive Date: 20141103
  Receipt Date: 20141103
  Transmission Date: 20150529
  Serious: No
  Sender: FDA-Public Use
  Company Number: US-PFIZER INC-2014301389

PATIENT
  Sex: Female

DRUGS (3)
  1. GABAPENTIN. [Suspect]
     Active Substance: GABAPENTIN
     Dosage: 300 MG, UNK
  2. LEXAPRO [Suspect]
     Active Substance: ESCITALOPRAM OXALATE
     Dosage: UNK
  3. TRAMADOL HCL [Suspect]
     Active Substance: TRAMADOL HYDROCHLORIDE
     Dosage: 1/2 OF A 50 MG TABLET, 2X/DAY

REACTIONS (6)
  - Activities of daily living impaired [Unknown]
  - Pain [Unknown]
  - Visual acuity reduced [Unknown]
  - Dry eye [Unknown]
  - Fatigue [Unknown]
  - Insomnia [Unknown]
